FAERS Safety Report 8564836-8 (Version None)
Quarter: 2012Q3

REPORT INFORMATION
  Report Type: 
  Country: None (occurrence: None)
  Receive Date: 20120803
  Receipt Date: 20120727
  Transmission Date: 20120928
  Serious: Yes (Hospitalization, Other)
  Sender: FDA-Public Use
  Company Number: CA-ELI_LILLY_AND_COMPANY-CA201202000400

PATIENT
  Age: 83 Year
  Sex: Female

DRUGS (9)
  1. RAMIPRIL [Concomitant]
  2. GABAPENTIN [Concomitant]
  3. EFFEXOR [Concomitant]
  4. FORTEO [Suspect]
     Indication: OSTEOPOROSIS
     Dosage: 20 UG, QD
     Route: 058
     Dates: start: 20111120, end: 20120128
  5. VITAMIN D [Concomitant]
  6. FORTEO [Suspect]
     Dosage: 20 UG, QD
     Route: 058
     Dates: start: 20120204, end: 20120718
  7. CALCIUM [Concomitant]
  8. GASTROLYTE [Concomitant]
  9. ASPIRIN [Concomitant]

REACTIONS (13)
  - HOSPITALISATION [None]
  - MUSCULOSKELETAL PAIN [None]
  - MYOCARDIAL INFARCTION [None]
  - WEIGHT BEARING DIFFICULTY [None]
  - DIZZINESS [None]
  - PAIN IN EXTREMITY [None]
  - BONE PAIN [None]
  - PALPITATIONS [None]
  - INTESTINAL OBSTRUCTION [None]
  - HYPERHIDROSIS [None]
  - FALL [None]
  - STERNAL FRACTURE [None]
  - ATRIAL FIBRILLATION [None]
